FAERS Safety Report 10012843 (Version 3)
Quarter: 2014Q2

REPORT INFORMATION
  Report Type: Spontaneous
  Country: US (occurrence: US)
  Receive Date: 20140314
  Receipt Date: 20140410
  Transmission Date: 20141212
  Serious: Yes (Other)
  Sender: FDA-Public Use
  Company Number: US-TEVA-468841USA

PATIENT
  Age: 26 Year
  Sex: Female
  Weight: 87.62 kg

DRUGS (1)
  1. PARAGARD 380A [Suspect]
     Indication: CONTRACEPTION
     Route: 015
     Dates: start: 200907, end: 20140311

REACTIONS (5)
  - Device breakage [Not Recovered/Not Resolved]
  - Embedded device [Recovered/Resolved]
  - Muscle spasms [Recovered/Resolved]
  - Metrorrhagia [Unknown]
  - Metrorrhagia [Unknown]
